FAERS Safety Report 8065685-X (Version None)
Quarter: 2012Q1

REPORT INFORMATION
  Report Type: 
  Country: None (occurrence: None)
  Receive Date: 20120124
  Receipt Date: 20120119
  Transmission Date: 20120608
  Serious: Yes (Other)
  Sender: FDA-Public Use
  Company Number: JP-SANOFI-AVENTIS-2012SA004178

PATIENT
  Age: 84 Year
  Sex: Female

DRUGS (3)
  1. PLAVIX [Suspect]
     Route: 048
  2. ANGIOTENSIN II ANTAGONISTS [Suspect]
     Route: 065
  3. ALL OTHER THERAPEUTIC PRODUCTS [Concomitant]

REACTIONS (1)
  - RHABDOMYOLYSIS [None]
